FAERS Safety Report 7069909-7 (Version None)
Quarter: 2010Q4

REPORT INFORMATION
  Report Type: 
  Country: None (occurrence: None)
  Receive Date: 20101028
  Receipt Date: 20100707
  Transmission Date: 20110411
  Serious: No
  Sender: FDA-Public Use
  Company Number: US-WYE-H16284910

PATIENT
  Sex: Female

DRUGS (1)
  1. ADVIL [Suspect]

REACTIONS (1)
  - DISCOMFORT [None]
